FAERS Safety Report 6762289-3 (Version None)
Quarter: 2010Q2

REPORT INFORMATION
  Report Type: 
  Country: None (occurrence: None)
  Receive Date: 20100609
  Receipt Date: 20100601
  Transmission Date: 20101027
  Serious: Yes (Death)
  Sender: FDA-Public Use
  Company Number: US-JNJFOC-20100600659

PATIENT
  Age: 16 Year
  Sex: Female

DRUGS (3)
  1. EXTRA STRENGTH TYLENOL PM [Suspect]
     Indication: DRUG USE FOR UNKNOWN INDICATION
  2. COCAINE [Suspect]
     Indication: DRUG USE FOR UNKNOWN INDICATION
  3. CAFFEINE [Suspect]
     Indication: DRUG USE FOR UNKNOWN INDICATION

REACTIONS (1)
  - MULTIPLE DRUG OVERDOSE ACCIDENTAL [None]
